FAERS Safety Report 25223827 (Version 1)
Quarter: 2025Q2

REPORT INFORMATION
  Report Type: Spontaneous
  Country: US (occurrence: US)
  Receive Date: 20250422
  Receipt Date: 20250422
  Transmission Date: 20250717
  Serious: Yes (Life-Threatening, Hospitalization, Other)
  Sender: RANBAXY
  Company Number: US-SUN PHARMACEUTICAL INDUSTRIES LTD-2025R1-504559

PATIENT
  Age: 39 Year
  Sex: Male

DRUGS (3)
  1. AMLODIPINE [Suspect]
     Active Substance: AMLODIPINE BESYLATE
     Indication: Hypotension
     Route: 065
  2. PROMETHAZINE [Suspect]
     Active Substance: PROMETHAZINE HYDROCHLORIDE
     Indication: Hypotension
     Route: 065
  3. CYCLOBENZAPRINE [Suspect]
     Active Substance: CYCLOBENZAPRINE
     Indication: Hypotension
     Route: 065

REACTIONS (7)
  - Overdose [Unknown]
  - Shock [Unknown]
  - Mental status changes [Unknown]
  - Apnoea [Unknown]
  - Acute kidney injury [Unknown]
  - Respiratory failure [Unknown]
  - Pneumonia aspiration [Unknown]
